FAERS Safety Report 5217078-8 (Version None)
Quarter: 2007Q1

REPORT INFORMATION
  Report Type: 
  Country: None (occurrence: None)
  Receive Date: 20070124
  Receipt Date: 20070115
  Transmission Date: 20070707
  Serious: Yes (Other)
  Sender: FDA-Public Use
  Company Number: FR-ELI_LILLY_AND_COMPANY-FR200701003356

PATIENT
  Age: 82 Year
  Sex: Female

DRUGS (5)
  1. FORTEO [Suspect]
     Indication: OSTEOPOROSIS
     Dosage: 20 UG, DAILY (1/D)
     Route: 058
     Dates: start: 20060510
  2. EUPRESSYL [Concomitant]
     Indication: HYPERTENSION
  3. DIGOXIN [Concomitant]
     Dosage: 0.5 D/F, DAILY (1/D)
  4. ATARAX [Concomitant]
     Dosage: 0.5 D/F, EACH EVENING
  5. DOLIPRANE [Concomitant]
     Indication: PAIN

REACTIONS (2)
  - INTRACARDIAC THROMBUS [None]
  - RASH [None]
